FAERS Safety Report 7610558-7 (Version None)
Quarter: 2011Q3

REPORT INFORMATION
  Report Type: 
  Country: None (occurrence: None)
  Receive Date: 20110715
  Receipt Date: 20110525
  Transmission Date: 20111222
  Serious: Yes (Hospitalization, Disabling, Other)
  Sender: FDA-Public Use
  Company Number: BR-BAYER-2011-045520

PATIENT
  Sex: Female

DRUGS (2)
  1. BETASERON [Suspect]
     Dosage: 9.6 MIU, QOD
     Route: 058
     Dates: start: 20030101, end: 20110201
  2. GABAPENTIN [Concomitant]
     Indication: BURNING SENSATION

REACTIONS (18)
  - ROAD TRAFFIC ACCIDENT [None]
  - ABASIA [None]
  - FOOT FRACTURE [None]
  - EAR HAEMORRHAGE [None]
  - TRAUMATIC HAEMORRHAGE [None]
  - POST-TRAUMATIC PAIN [None]
  - INJECTION SITE PAIN [None]
  - PAIN IN EXTREMITY [None]
  - LIMB INJURY [None]
  - DIZZINESS [None]
  - INSOMNIA [None]
  - INJECTION SITE HAEMATOMA [None]
  - ANAEMIA [None]
  - BURNING SENSATION [None]
  - GAIT DISTURBANCE [None]
  - HEAD INJURY [None]
  - INJECTION SITE DISCOLOURATION [None]
  - AMNESIA [None]
